FAERS Safety Report 6196860-7 (Version None)
Quarter: 2009Q2

REPORT INFORMATION
  Report Type: 
  Country: None (occurrence: None)
  Receive Date: 20090520
  Receipt Date: 20090513
  Transmission Date: 20091009
  Serious: Yes (Disabling, Other)
  Sender: FDA-Public Use
  Company Number: US-ABBOTT-09P-163-0573269-00

PATIENT
  Sex: Female

DRUGS (1)
  1. HUMIRA [Suspect]
     Indication: RHEUMATOID ARTHRITIS
     Route: 058
     Dates: end: 20090401

REACTIONS (7)
  - BALANCE DISORDER [None]
  - DIPLOPIA [None]
  - DIZZINESS [None]
  - FALL [None]
  - IMPAIRED DRIVING ABILITY [None]
  - MULTIPLE SCLEROSIS [None]
  - VISUAL IMPAIRMENT [None]
